FAERS Safety Report 9417571 (Version 1)
Quarter: 2013Q3

REPORT INFORMATION
  Report Type: Spontaneous
  Country: US (occurrence: US)
  Receive Date: 20130724
  Receipt Date: 20130724
  Transmission Date: 20140515
  Serious: No
  Sender: FDA-Public Use
  Company Number: US-BRISTOL-MYERS SQUIBB COMPANY-19010131

PATIENT
  Age: 60 Year
  Sex: Female

DRUGS (7)
  1. ELIQUIS [Suspect]
     Dates: start: 20130505
  2. ASPIRIN [Suspect]
  3. DIGOXIN [Concomitant]
  4. VERAPAMIL [Concomitant]
  5. LASIX [Concomitant]
  6. GABAPENTIN [Concomitant]
  7. MONTELUKAST [Concomitant]

REACTIONS (1)
  - Haematoma [Unknown]
